FAERS Safety Report 16938417 (Version 1)
Quarter: 2019Q4

REPORT INFORMATION
  Report Type: Spontaneous
  Country: CN (occurrence: CN)
  Receive Date: 20191019
  Receipt Date: 20191019
  Transmission Date: 20200122
  Serious: Yes (Hospitalization, Other)
  Sender: FDA-Public Use
  Company Number: CN-BAXTER-2019BAX020413

PATIENT
  Age: 10 Year
  Sex: Male
  Weight: 37 kg

DRUGS (14)
  1. STERILE WATER FOR INJECTION [Suspect]
     Active Substance: WATER
     Indication: MEDICATION DILUTION
     Dosage: DOXORUBICIN 94.5 MG + STERILE WATER + GS 500 ML ON DAY 1
     Route: 041
     Dates: start: 20190907, end: 20190907
  2. STERILE WATER FOR INJECTION [Suspect]
     Active Substance: WATER
     Dosage: DOSE RE-INTRODUCED, DOXORUBICIN + STERILE WATER + GS
     Route: 041
  3. DOXORUBICIN HYDROCHLORIDE. [Suspect]
     Active Substance: DOXORUBICIN HYDROCHLORIDE
     Indication: BONE CANCER
     Dosage: DOXORUBICIN + STERILE WATER 45 ML + GS 500 ML ON DAY 1
     Route: 041
     Dates: start: 20190907, end: 20190907
  4. ENDOXAN [Suspect]
     Active Substance: CYCLOPHOSPHAMIDE
     Indication: BONE CANCER
     Dosage: CYCLOPHOSPHAMIDE + NS 500 ML ON DAY 1
     Route: 041
     Dates: start: 20190907, end: 20190907
  5. 5% GLUCOSE  INJECTION [Suspect]
     Active Substance: DEXTROSE
     Dosage: DOSE RE-INTRODUCED, DOXORUBICIN + STERILE WATER + GS
     Route: 041
  6. XIAIKE [Suspect]
     Active Substance: VINDESINE
     Indication: BONE CANCER
     Dosage: VINDESINE + GS 500 ML ON DAY 1
     Route: 041
     Dates: start: 20190907, end: 20190907
  7. 0.9% SODIUM CHLORIDE INJECTION [Suspect]
     Active Substance: SODIUM CHLORIDE
     Indication: MEDICATION DILUTION
     Dosage: CYCLOPHOSPHAMIDE 1.5 G + NS ON DAY 1
     Route: 041
     Dates: start: 20190907, end: 20190907
  8. 5% GLUCOSE  INJECTION [Suspect]
     Active Substance: DEXTROSE
     Indication: MEDICATION DILUTION
     Dosage: VINDESINE 3.6 MG + GS ON DAY 1
     Route: 041
     Dates: start: 20190907, end: 20190907
  9. DOXORUBICIN HYDROCHLORIDE. [Suspect]
     Active Substance: DOXORUBICIN HYDROCHLORIDE
     Dosage: DOSE RE-INTRODUCED; DOXORUBICIN HYDROCHLORIDE + STERILE WATER + GS
     Route: 041
  10. 5% GLUCOSE  INJECTION [Suspect]
     Active Substance: DEXTROSE
     Dosage: DOXORUBICIN 94.5 MG + STERILE WATER 45 ML + GS ON DAY 1
     Route: 041
     Dates: start: 20190907, end: 20190907
  11. 5% GLUCOSE  INJECTION [Suspect]
     Active Substance: DEXTROSE
     Dosage: DOSE RE-INTRODUCED, VINDESINE + GS
     Route: 041
  12. ENDOXAN [Suspect]
     Active Substance: CYCLOPHOSPHAMIDE
     Dosage: DOSE RE-INTRODUCED, CYCLOPHOSPHAMIDE + NS
     Route: 041
  13. XIAIKE [Suspect]
     Active Substance: VINDESINE
     Dosage: DOSE RE-INTRODUCED, VINDESINE SULFATE + GS
     Route: 041
  14. 0.9% SODIUM CHLORIDE INJECTION [Suspect]
     Active Substance: SODIUM CHLORIDE
     Dosage: DOSE RE-INTRODUCED, CYCLOPHOSPHAMIDE + NS
     Route: 041

REACTIONS (1)
  - Bone marrow failure [Recovering/Resolving]

NARRATIVE: CASE EVENT DATE: 20190915
